FAERS Safety Report 4575783-0 (Version None)
Quarter: 2005Q1

REPORT INFORMATION
  Report Type: 
  Country: None (occurrence: None)
  Receive Date: 20050209
  Receipt Date: 20050131
  Transmission Date: 20050727
  Serious: Yes (Life-Threatening, Hospitalization)
  Sender: FDA-Public Use
  Company Number: FR-ABBOTT-05P-056-0289045-00

PATIENT
  Sex: Female
  Weight: 44 kg

DRUGS (3)
  1. SECALIP [Suspect]
     Indication: HYPERCHOLESTEROLAEMIA
     Route: 048
     Dates: start: 20040101, end: 20041215
  2. LIPANTHYL TABLETS [Suspect]
     Indication: HYPERCHOLESTEROLAEMIA
     Dates: end: 20040101
  3. LEVOCETIRIZINE DIHYDROCHLORIDE [Concomitant]
     Indication: RHINITIS ALLERGIC
     Dates: start: 20041127, end: 20041215

REACTIONS (4)
  - CYST [None]
  - PANCREATIC CYST [None]
  - PANCREATITIS HAEMORRHAGIC [None]
  - PANCREATITIS NECROTISING [None]
